FAERS Safety Report 12761817 (Version 2)
Quarter: 2016Q4

REPORT INFORMATION
  Report Type: Spontaneous
  Country: BE (occurrence: BE)
  Receive Date: 20160920
  Receipt Date: 20161003
  Transmission Date: 20170207
  Serious: Yes (Death)
  Sender: FDA-Public Use
  Company Number: BE-OCTA-WIL01616BE

PATIENT
  Age: 40 Year
  Sex: Male

DRUGS (2)
  1. KEPPRA [Concomitant]
     Active Substance: LEVETIRACETAM
     Indication: PRODUCT USED FOR UNKNOWN INDICATION
  2. WILATE [Suspect]
     Active Substance: HUMAN COAGULATION FACTOR VIII/VON WILLEBRAND FACTOR COMPLEX
     Indication: VON WILLEBRAND^S DISEASE
     Dosage: 2000 IU ON MONDAY, 3000 IU ON FRIDAY
     Route: 042
     Dates: start: 20160829, end: 20160901

REACTIONS (4)
  - Von Willebrand^s factor antigen decreased [None]
  - Coagulation factor VIII level decreased [None]
  - Haemorrhagic stroke [Fatal]
  - Von Willebrand^s factor activity decreased [None]

NARRATIVE: CASE EVENT DATE: 20160903
